FAERS Safety Report 22756808 (Version 4)
Quarter: 2023Q4

REPORT INFORMATION
  Report Type: Spontaneous
  Country: US (occurrence: US)
  Receive Date: 20230727
  Receipt Date: 20231107
  Transmission Date: 20240110
  Serious: Yes (Other)
  Sender: FDA-Public Use
  Company Number: US-PFIZER INC-202300258029

PATIENT
  Age: 6 Year
  Sex: Male
  Weight: 15.873 kg

DRUGS (2)
  1. GENOTROPIN [Suspect]
     Active Substance: SOMATROPIN
     Indication: Growth hormone deficiency
     Dosage: 0.6 MG
  2. GENOTROPIN [Suspect]
     Active Substance: SOMATROPIN
     Indication: Adrenal insufficiency
     Dosage: 0.8 MG, 1X/DAY (0.8MG ONCE A DAY BY INJECTION)
     Dates: start: 2023

REACTIONS (7)
  - Drug ineffective [Not Recovered/Not Resolved]
  - Incorrect dose administered by device [Unknown]
  - Poor quality device used [Unknown]
  - Device information output issue [Unknown]
  - Device mechanical issue [Unknown]
  - Device defective [Unknown]
  - Expired device used [Unknown]

NARRATIVE: CASE EVENT DATE: 20230720
